FAERS Safety Report 6034988-2 (Version None)
Quarter: 2009Q1

REPORT INFORMATION
  Report Type: 
  Country: None (occurrence: None)
  Receive Date: 20090108
  Receipt Date: 20090108
  Transmission Date: 20090719
  Serious: No
  Sender: FDA-Public Use
  Company Number: None

PATIENT
  Age: 37 Year
  Sex: Female
  Weight: 63.9572 kg

DRUGS (4)
  1. HEPARIN [Suspect]
     Indication: HYPERCOAGULATION
     Dosage: 58CC BID SQ
     Route: 058
     Dates: start: 20080912, end: 20081024
  2. HEPARIN [Suspect]
     Indication: PLASMINOGEN ACTIVATOR INHIBITOR INCREASED
     Dosage: 58CC BID SQ
     Route: 058
     Dates: start: 20080912, end: 20081024
  3. HEPARIN [Suspect]
     Indication: HYPERCOAGULATION
     Dosage: 58CC BID SQ
     Route: 058
     Dates: start: 20081025, end: 20081231
  4. HEPARIN [Suspect]
     Indication: PLASMINOGEN ACTIVATOR INHIBITOR INCREASED
     Dosage: 58CC BID SQ
     Route: 058
     Dates: start: 20081025, end: 20081231

REACTIONS (3)
  - ANTICOAGULATION DRUG LEVEL ABOVE THERAPEUTIC [None]
  - DRUG EXPOSURE DURING PREGNANCY [None]
  - PRODUCT QUALITY ISSUE [None]
